FAERS Safety Report 8333812-2 (Version None)
Quarter: 2012Q2

REPORT INFORMATION
  Report Type: 
  Country: None (occurrence: None)
  Receive Date: 20120503
  Receipt Date: 20120427
  Transmission Date: 20120825
  Serious: Yes (Other)
  Sender: FDA-Public Use
  Company Number: DE-PFIZER INC-2012104488

PATIENT
  Age: 46 Year
  Sex: Female

DRUGS (3)
  1. LYRICA [Suspect]
     Dosage: 75 MG, UNK
  2. VENLAFAXINE HYDROCHLORIDE [Concomitant]
  3. ZYPREXA [Concomitant]

REACTIONS (1)
  - BONE DISORDER [None]
